FAERS Safety Report 5243091-0 (Version None)
Quarter: 2007Q1

REPORT INFORMATION
  Report Type: 
  Country: None (occurrence: None)
  Receive Date: 20070221
  Receipt Date: 20070214
  Transmission Date: 20070707
  Serious: Yes (Hospitalization)
  Sender: FDA-Public Use
  Company Number: IT-ROXANE LABORATORIES, INC-2007-BP-02314RO

PATIENT
  Age: 76 Year
  Sex: Female

DRUGS (4)
  1. PREDNISONE 50MG TAB [Suspect]
     Indication: SJOGREN'S SYNDROME
     Dosage: 25 MG/DAY
  2. ALBENDAZOLE [Suspect]
     Indication: HELMINTHIC INFECTION
     Dosage: 400 MG X 3 DAYS
     Route: 048
     Dates: start: 20040401, end: 20040401
  3. ALBENDAZOLE [Suspect]
     Dosage: 400 MG X 3 DAYS
     Route: 048
     Dates: start: 20040701, end: 20040701
  4. ALBENDAZOLE [Suspect]
     Dosage: 400 MG BID X 3 DAYS
     Route: 048
     Dates: start: 20050101

REACTIONS (7)
  - ANAEMIA [None]
  - DUODENITIS [None]
  - GASTRITIS [None]
  - OESOPHAGEAL CANDIDIASIS [None]
  - OESOPHAGITIS [None]
  - STRONGYLOIDIASIS [None]
  - WEIGHT DECREASED [None]
